FAERS Safety Report 23338153 (Version 1)
Quarter: 2023Q4

REPORT INFORMATION
  Report Type: Spontaneous
  Country: DE (occurrence: DE)
  Receive Date: 20231226
  Receipt Date: 20231226
  Transmission Date: 20240109
  Serious: Yes (Other)
  Sender: FDA-Public Use
  Company Number: DE-ROCHE-3407980

PATIENT
  Sex: Female

DRUGS (4)
  1. CYCLOPHOSPHAMIDE [Suspect]
     Active Substance: CYCLOPHOSPHAMIDE
     Indication: Breast cancer
     Route: 065
  2. EPIRUBICIN [Suspect]
     Active Substance: EPIRUBICIN
     Indication: Breast cancer
     Route: 065
  3. HERCEPTIN [Suspect]
     Active Substance: TRASTUZUMAB
     Indication: Breast cancer
     Route: 065
  4. TAXOTERE [Suspect]
     Active Substance: DOCETAXEL
     Indication: Breast cancer
     Dosage: UNK
     Route: 065

REACTIONS (14)
  - Hepatic cyst [Unknown]
  - Pulmonary arterial pressure increased [Unknown]
  - Cardiac failure [Unknown]
  - Palpitations [Unknown]
  - Left atrial enlargement [Unknown]
  - Arrhythmia supraventricular [Unknown]
  - Pleural effusion [Unknown]
  - Paroxysmal arrhythmia [Unknown]
  - Electrocardiogram abnormal [Unknown]
  - Syncope [Unknown]
  - Pericardial effusion [Unknown]
  - Atrial fibrillation [Unknown]
  - Ill-defined disorder [Unknown]
  - Liver function test increased [Unknown]
